FAERS Safety Report 8875348 (Version 1)
Quarter: 2012Q4

REPORT INFORMATION
  Report Type: 
  Country: CH (occurrence: CH)
  Receive Date: 20121029
  Receipt Date: 20121029
  Transmission Date: 20130627
  Serious: Yes (Other)
  Sender: FDA-Public Use
  Company Number: CH-SANOFI-AVENTIS-2012SA078163

PATIENT
  Sex: Female

DRUGS (7)
  1. ZOLPIDEM [Suspect]
     Indication: DRUG EXPOSURE IN UTERO
     Route: 064
  2. DEPAKINE [Suspect]
     Indication: DRUG EXPOSURE IN UTERO
     Route: 064
     Dates: end: 201107
  3. CITALOPRAM [Suspect]
     Indication: DRUG EXPOSURE IN UTERO
     Route: 064
  4. SEROQUEL [Suspect]
     Indication: DRUG EXPOSURE IN UTERO
     Route: 064
  5. OXAZEPAM [Suspect]
     Indication: DRUG EXPOSURE IN UTERO
     Route: 064
  6. TRITTICO [Suspect]
     Indication: DRUG EXPOSURE IN UTERO
     Route: 064
  7. TEMESTA [Suspect]
     Indication: DRUG EXPOSURE IN UTERO
     Route: 064
     Dates: end: 201107

REACTIONS (3)
  - Foetal growth restriction [Recovered/Resolved]
  - Foetal exposure during pregnancy [Recovered/Resolved]
  - Maternal drugs affecting foetus [None]
